FAERS Safety Report 8546190-0 (Version None)
Quarter: 2012Q3

REPORT INFORMATION
  Report Type: 
  Country: None (occurrence: None)
  Receive Date: 20120727
  Receipt Date: 20120724
  Transmission Date: 20120928
  Serious: Yes (Death, Other)
  Sender: FDA-Public Use
  Company Number: PHHY2012PT063971

PATIENT
  Age: 9 Month
  Sex: Male

DRUGS (2)
  1. PREDNISOLONE [Suspect]
     Indication: GASTROINTESTINAL DISORDER
     Dosage: 1 MG/KG, UNK
  2. TACROLIMUS [Suspect]
     Indication: GASTROINTESTINAL DISORDER
     Dosage: 0.06 MG/KG, UNK

REACTIONS (3)
  - SEPTIC SHOCK [None]
  - MULTI-ORGAN FAILURE [None]
  - ESCHERICHIA INFECTION [None]
